FAERS Safety Report 7007546-0 (Version None)
Quarter: 2010Q3

REPORT INFORMATION
  Report Type: 
  Country: None (occurrence: None)
  Receive Date: 20100922
  Receipt Date: 20100920
  Transmission Date: 20110219
  Serious: Yes (Hospitalization)
  Sender: FDA-Public Use
  Company Number: IT-PFIZER INC-2010112531

PATIENT
  Age: 26 Year
  Sex: Male

DRUGS (1)
  1. BASSADO [Suspect]
     Indication: TONSILLITIS
     Dosage: 100 MG, TOTAL
     Route: 048
     Dates: start: 20100811, end: 20100811

REACTIONS (1)
  - LIP OEDEMA [None]
